FAERS Safety Report 10920721 (Version 2)
Quarter: 2015Q2

REPORT INFORMATION
  Report Type: Spontaneous
  Country: US (occurrence: US)
  Receive Date: 20150317
  Receipt Date: 20150417
  Transmission Date: 20150821
  Serious: Yes (Hospitalization)
  Sender: FDA-Public Use
  Company Number: US-BEH-2015049562

PATIENT
  Age: 52 Year
  Sex: Female
  Weight: 54 kg

DRUGS (1)
  1. HUMATE-P [Suspect]
     Active Substance: HUMAN COAGULATION FACTOR VIII/VON WILLEBRAND FACTOR COMPLEX
     Indication: VON WILLEBRAND^S DISEASE
     Route: 042
     Dates: start: 20140129

REACTIONS (6)
  - Influenza [Recovered/Resolved]
  - Cholelithiasis [Unknown]
  - Dyspnoea [Unknown]
  - Blood pressure diastolic decreased [Recovered/Resolved]
  - Pancreatitis [Unknown]
  - Infection [Unknown]

NARRATIVE: CASE EVENT DATE: 20150208
